FAERS Safety Report 20434530 (Version 2)
Quarter: 2022Q2

REPORT INFORMATION
  Report Type: Report from Study
  Country: US (occurrence: US)
  Receive Date: 20220206
  Receipt Date: 20220406
  Transmission Date: 20220721
  Serious: No
  Sender: FDA-Public Use
  Company Number: US-NOVARTISTESTPH-NVSC2022US024911

PATIENT
  Sex: Female

DRUGS (1)
  1. COSENTYX [Suspect]
     Active Substance: SECUKINUMAB
     Indication: Psoriatic arthropathy
     Dosage: 150 MG, QMO (EVERY 4 WEEKS)
     Route: 058

REACTIONS (7)
  - Sinus headache [Unknown]
  - Fatigue [Unknown]
  - Chronic fatigue syndrome [Unknown]
  - Epstein-Barr virus infection [Unknown]
  - Nasopharyngitis [Unknown]
  - Onycholysis [Unknown]
  - Pain in extremity [Unknown]
